FAERS Safety Report 8078036-1 (Version None)
Quarter: 2012Q1

REPORT INFORMATION
  Report Type: 
  Country: None (occurrence: None)
  Receive Date: 20120127
  Receipt Date: 20110106
  Transmission Date: 20120608
  Serious: No
  Sender: FDA-Public Use
  Company Number: US-ABBOTT-11P-163-0695893-00

PATIENT
  Sex: Female
  Weight: 60.836 kg

DRUGS (16)
  1. ACETAMINOPHEN [Concomitant]
     Indication: PRODUCT USED FOR UNKNOWN INDICATION
  2. PREDNISONE [Concomitant]
     Indication: RHEUMATOID ARTHRITIS
     Dosage: 5 OR 10 MG
  3. AMITRIPTYLINE HCL [Concomitant]
     Indication: DEPRESSION
  4. POTASSIUM [Concomitant]
     Indication: BLOOD POTASSIUM DECREASED
  5. VITAMIN D [Concomitant]
     Indication: PRODUCT USED FOR UNKNOWN INDICATION
  6. STOOL SOFTENER [Concomitant]
     Indication: PRODUCT USED FOR UNKNOWN INDICATION
  7. FLURAZEPAM [Concomitant]
     Indication: INSOMNIA
  8. HYDROCODONE [Concomitant]
     Indication: PAIN
  9. NEXIUM [Concomitant]
     Indication: DYSPEPSIA
  10. PHENOBARBITAL TAB [Concomitant]
     Indication: CONVULSION
  11. EXCEDRIN [Concomitant]
     Indication: MIGRAINE
  12. TRIAMTERENE [Concomitant]
     Indication: OEDEMA PERIPHERAL
  13. HUMIRA [Suspect]
     Indication: RHEUMATOID ARTHRITIS
     Dates: start: 20101201, end: 20101201
  14. HUMIRA [Suspect]
     Dates: start: 20101229, end: 20101229
  15. SIMVASTATIN [Concomitant]
     Indication: BLOOD CHOLESTEROL INCREASED
  16. IMITREX [Concomitant]
     Indication: MIGRAINE

REACTIONS (3)
  - LACERATION [None]
  - ARTHRALGIA [None]
  - PAIN [None]
